FAERS Safety Report 23355594 (Version 2)
Quarter: 2024Q3

REPORT INFORMATION
  Report Type: Report from Study
  Country: US (occurrence: US)
  Receive Date: 20240102
  Receipt Date: 20240801
  Transmission Date: 20241017
  Serious: No
  Sender: DECIPHERA PHARMACEUTICALS
  Company Number: US-DECIPHERA PHARMACEUTICALS LLC-2023US001131

PATIENT
  Age: 77 Year
  Sex: Female

DRUGS (3)
  1. QINLOCK [Suspect]
     Active Substance: RIPRETINIB
     Indication: Gastrointestinal stromal tumour
     Dosage: 150 MILLIGRAM
     Route: 048
     Dates: start: 20220908
  2. QINLOCK [Suspect]
     Active Substance: RIPRETINIB
     Dosage: 150 MILLIGRAM, BID (MISSED 1 DOSE )
     Route: 048
  3. QINLOCK [Suspect]
     Active Substance: RIPRETINIB
     Dosage: 150 MILLIGRAM, BID
     Route: 048

REACTIONS (4)
  - Distractibility [Unknown]
  - Oedema peripheral [Recovering/Resolving]
  - Extra dose administered [Unknown]
  - Product dose omission in error [Unknown]
